FAERS Safety Report 7810167-0 (Version None)
Quarter: 2011Q4

REPORT INFORMATION
  Report Type: 
  Country: None (occurrence: None)
  Receive Date: 20111012
  Receipt Date: 20111010
  Transmission Date: 20120403
  Serious: Yes (Other)
  Sender: FDA-Public Use
  Company Number: US-TEVA-296629USA

PATIENT
  Age: 47 Year
  Sex: Female
  Weight: 143.01 kg

DRUGS (17)
  1. METOPROLOL SUCCINATE [Concomitant]
     Dosage: 100 MILLIGRAM;
     Route: 048
  2. TIZANIDINE HCL [Concomitant]
     Dosage: 8 MILLIGRAM;
     Route: 048
  3. PREGABALIN [Concomitant]
     Dosage: 600 MILLIGRAM;
     Route: 048
  4. DOCUSATE [Concomitant]
     Dosage: 480 MILLIGRAM;
     Route: 048
  5. NORTRIPTYLINE HYDROCHLORIDE [Concomitant]
     Dosage: 15 MILLIGRAM; AT BEDTIME
     Route: 048
  6. LISINOPRIL [Concomitant]
     Dosage: 10 MILLIGRAM;
     Route: 048
  7. DULOXETIME HYDROCHLORIDE [Concomitant]
     Dosage: 60 MILLIGRAM;
     Route: 048
  8. INTERFERON BETA-1A [Concomitant]
     Dosage: HAS HAD 3 DOSES AS OF 02-AUG-2011
  9. COPAXONE [Suspect]
     Indication: MULTIPLE SCLEROSIS
     Route: 058
  10. DALFAMPRIDINE [Concomitant]
     Dosage: 20 MILLIGRAM;
     Route: 048
  11. TETRACYCLINE [Concomitant]
     Dosage: 250 MILLIGRAM;
  12. DICLOFENAC W/MISOPROSTOL [Concomitant]
     Dosage: 150 MILLIGRAM;
     Route: 048
  13. BISACODYL [Concomitant]
     Dosage: 2 CAPS 4 X A DAY
     Route: 048
  14. METFORMIN HYDROCHLORIDE [Concomitant]
     Dosage: 1000 MILLIGRAM; WITH MEALS
     Route: 048
  15. VICODIN [Concomitant]
     Indication: PAIN
     Dosage: EVERY 4 HOURS AS NEEDED
     Route: 048
  16. FENOFIBRATE [Concomitant]
     Dosage: 134 MILLIGRAM;
     Route: 048
  17. NORETHINDRONE [Concomitant]
     Dosage: 5 MILLIGRAM;
     Route: 048

REACTIONS (1)
  - INJECTION SITE NECROSIS [None]
